FAERS Safety Report 19427297 (Version 1)
Quarter: 2021Q2

REPORT INFORMATION
  Report Type: Other
  Country: US (occurrence: US)
  Receive Date: 20210617
  Receipt Date: 20210617
  Transmission Date: 20210717
  Serious: Yes (Hospitalization, Other)
  Sender: FDA-Public Use
  Company Number: US-DENTSPLY-2021SCDP000175

PATIENT
  Age: 57 Year
  Sex: Female

DRUGS (1)
  1. LIDOCAINE HYDROCHLORIDE AND EPINEPHRINE BITARTRATE [Suspect]
     Active Substance: EPINEPHRINE BITARTRATE\LIDOCAINE HYDROCHLORIDE
     Indication: NERVE BLOCK
     Dosage: 3 MILLILITER TOTAL INJECTION (10 MCG/ML EPINEPHRINE, 1 % LIDOCAINE HYDROCHLORIDE)

REACTIONS (2)
  - Extremity necrosis [Recovered/Resolved]
  - Dry gangrene [Recovered/Resolved]
